FAERS Safety Report 9798659 (Version 1)
Quarter: 2014Q1

REPORT INFORMATION
  Report Type: Spontaneous
  Country: US (occurrence: US)
  Receive Date: 20140106
  Receipt Date: 20140106
  Transmission Date: 20141002
  Serious: No
  Sender: FDA-Public Use
  Company Number: US-GILEAD-2010-0029632

PATIENT
  Sex: Female
  Weight: 132.45 kg

DRUGS (13)
  1. LETAIRIS [Suspect]
     Indication: PULMONARY ARTERIAL HYPERTENSION
     Route: 048
     Dates: start: 20100503
  2. BENADRYL [Concomitant]
  3. OXYGEN [Concomitant]
  4. IPRATROPIUM [Concomitant]
  5. KLOR-CON [Concomitant]
  6. ALBUTEROL [Concomitant]
  7. LORTAB [Concomitant]
  8. SODIUM CHLORIDE [Concomitant]
  9. REMODULIN [Concomitant]
  10. ATIVAN [Concomitant]
  11. LASIX [Concomitant]
  12. REVATIO [Concomitant]
  13. DIGOXIN [Concomitant]

REACTIONS (1)
  - Oedema [Unknown]
